FAERS Safety Report 12860956 (Version 1)
Quarter: 2016Q4

REPORT INFORMATION
  Report Type: Spontaneous
  Country: DE (occurrence: DE)
  Receive Date: 20161019
  Receipt Date: 20161019
  Transmission Date: 20170207
  Serious: Yes (Other)
  Sender: FDA-Public Use
  Company Number: DE-TEVA-701836GER

PATIENT
  Age: 60 Year
  Sex: Female

DRUGS (1)
  1. SUMATRIPTAN ACTAVIS 50 MG FILMTABLETTEN [Suspect]
     Active Substance: SUMATRIPTAN
     Indication: MIGRAINE
     Dosage: FOR YEARS, 6 TABLETS SPREAD ON 3 DAYS
     Route: 048

REACTIONS (1)
  - Stress cardiomyopathy [Unknown]

NARRATIVE: CASE EVENT DATE: 201609
